FAERS Safety Report 4383307-6 (Version None)
Quarter: 2004Q2

REPORT INFORMATION
  Report Type: 
  Country: None (occurrence: None)
  Receive Date: 20040618
  Receipt Date: 20040602
  Transmission Date: 20050107
  Serious: Yes (Hospitalization)
  Sender: FDA-Public Use
  Company Number: DSA_24487_2004

PATIENT
  Age: 33 Year
  Sex: Female
  Weight: 59 kg

DRUGS (8)
  1. ENALAPRIL MALEATE [Suspect]
     Dosage: 20 MG BID PO
     Route: 048
     Dates: start: 20021111, end: 20040510
  2. SENSIPAR [Suspect]
     Indication: HYPERPARATHYROIDISM SECONDARY
     Dosage: 30 MG QD PO
     Route: 048
     Dates: start: 20040508, end: 20040509
  3. LOSARTAN POTASSIUM [Concomitant]
  4. WARFARIN SODIUM [Concomitant]
  5. METOPROLOL SUCCINATE [Concomitant]
  6. SEVELAMER HCL [Concomitant]
  7. GABAPENTIN [Concomitant]
  8. ZALEPLON [Concomitant]

REACTIONS (5)
  - ANGIONEUROTIC OEDEMA [None]
  - BLOOD ALBUMIN DECREASED [None]
  - EOSINOPHIL PERCENTAGE INCREASED [None]
  - HAEMOGLOBIN DECREASED [None]
  - SERUM FERRITIN INCREASED [None]
